FAERS Safety Report 6968495-7 (Version None)
Quarter: 2010Q3

REPORT INFORMATION
  Report Type: 
  Country: None (occurrence: None)
  Receive Date: 20100907
  Receipt Date: 20100826
  Transmission Date: 20110219
  Serious: Yes (Other)
  Sender: FDA-Public Use
  Company Number: JP-ROCHE-724590

PATIENT
  Sex: Male

DRUGS (13)
  1. CAPECITABINE [Suspect]
     Indication: COLON CANCER
     Route: 048
     Dates: start: 20090810, end: 20090823
  2. CAPECITABINE [Suspect]
     Route: 048
     Dates: start: 20090831, end: 20090913
  3. CAPECITABINE [Suspect]
     Route: 048
     Dates: start: 20090921, end: 20091004
  4. CAPECITABINE [Suspect]
     Route: 048
     Dates: start: 20091012, end: 20091025
  5. CAPECITABINE [Suspect]
     Route: 048
     Dates: start: 20091102, end: 20091115
  6. CAPECITABINE [Suspect]
     Route: 048
     Dates: start: 20091207, end: 20091215
  7. MAGMITT [Concomitant]
     Route: 048
  8. LAC-B [Concomitant]
     Route: 048
  9. MUCOSTA [Concomitant]
     Route: 048
     Dates: start: 20090918
  10. PYDOXAL [Concomitant]
     Route: 048
     Dates: start: 20091009, end: 20091228
  11. URSO 250 [Concomitant]
     Route: 048
     Dates: start: 20091118, end: 20091207
  12. LAXOBERON [Concomitant]
     Dosage: FORM: PERORAL LIQUID PREPARATION
     Route: 048
  13. FOLIAMIN [Concomitant]
     Route: 048
     Dates: start: 20091018, end: 20091207

REACTIONS (3)
  - HAEMOLYTIC ANAEMIA [None]
  - HEADACHE [None]
  - PALMAR-PLANTAR ERYTHRODYSAESTHESIA SYNDROME [None]
